FAERS Safety Report 4705675-5 (Version None)
Quarter: 2005Q2

REPORT INFORMATION
  Report Type: 
  Country: None (occurrence: None)
  Receive Date: 20050629
  Receipt Date: 20050617
  Transmission Date: 20051028
  Serious: Yes (Other)
  Sender: FDA-Public Use
  Company Number: 2005081061

PATIENT
  Age: 28 Year
  Sex: Male

DRUGS (1)
  1. MINOXIDIL [Suspect]
     Indication: ALOPECIA EFFLUVIUM
     Dates: start: 20040901, end: 20050201

REACTIONS (11)
  - APHTHOUS STOMATITIS [None]
  - ASTHENIA [None]
  - CHROMATURIA [None]
  - DIZZINESS [None]
  - DYSPNOEA [None]
  - ERECTILE DYSFUNCTION [None]
  - HEART RATE INCREASED [None]
  - HYPOAESTHESIA [None]
  - MALAISE [None]
  - PHARYNGITIS [None]
  - SLEEP DISORDER [None]
